FAERS Safety Report 4606835-4 (Version None)
Quarter: 2005Q1

REPORT INFORMATION
  Report Type: 
  Country: None (occurrence: None)
  Receive Date: 20050310
  Receipt Date: 20050302
  Transmission Date: 20050727
  Serious: Yes (Hospitalization)
  Sender: FDA-Public Use
  Company Number: 2005UW03390

PATIENT
  Age: 17 Year
  Sex: Male
  Weight: 72.574 kg

DRUGS (3)
  1. SEROQUEL [Suspect]
     Indication: SLEEP DISORDER
     Dosage: 25 MG PO
     Route: 048
     Dates: start: 20050201, end: 20050201
  2. SEROQUEL [Suspect]
     Indication: SLEEP DISORDER
     Dosage: 100 MG QD PO
     Route: 048
  3. RISPERDAL [Concomitant]

REACTIONS (16)
  - ANOREXIA [None]
  - APHASIA [None]
  - ARRHYTHMIA [None]
  - ASTHENIA [None]
  - BRAIN DAMAGE [None]
  - DEHYDRATION [None]
  - DEPRESSION [None]
  - DYSPNOEA [None]
  - FLUID RETENTION [None]
  - MEMORY IMPAIRMENT [None]
  - MUSCLE ATROPHY [None]
  - NASOPHARYNGITIS [None]
  - NERVOUS SYSTEM DISORDER [None]
  - RESPIRATORY DISORDER [None]
  - RHINORRHOEA [None]
  - TARDIVE DYSKINESIA [None]
